FAERS Safety Report 6779510-8 (Version None)
Quarter: 2010Q2

REPORT INFORMATION
  Report Type: 
  Country: None (occurrence: None)
  Receive Date: 20100618
  Receipt Date: 20100609
  Transmission Date: 20101027
  Serious: Yes (Other)
  Sender: FDA-Public Use
  Company Number: TR-ELI_LILLY_AND_COMPANY-TR201006002507

PATIENT

DRUGS (5)
  1. HUMULIN R [Suspect]
     Indication: DIABETES MELLITUS
     Dosage: 20 IU, EACH MORNING
     Route: 064
     Dates: end: 20100510
  2. HUMULIN R [Suspect]
     Dosage: 20 IU, DAILY (1/D) AT NOON
     Route: 064
     Dates: end: 20100510
  3. HUMULIN R [Suspect]
     Dosage: 20 IU, EACH EVENING
     Route: 064
     Dates: end: 20100510
  4. HUMULIN N [Suspect]
     Indication: DIABETES MELLITUS
     Dosage: 20 U, DAILY (1/D) AT NIGHT
     Route: 064
     Dates: start: 20090101, end: 20100510
  5. ACETYLSALICYLIC ACID [Concomitant]
     Dosage: UNK, DAILY (1/D)
     Dates: end: 20100510

REACTIONS (2)
  - DRUG EXPOSURE DURING PREGNANCY [None]
  - NEONATAL INFECTION [None]
